FAERS Safety Report 7760523-4 (Version None)
Quarter: 2011Q3

REPORT INFORMATION
  Report Type: 
  Country: None (occurrence: None)
  Receive Date: 20110919
  Receipt Date: 20110908
  Transmission Date: 20111222
  Serious: Yes (Hospitalization, Other)
  Sender: FDA-Public Use
  Company Number: GB-ELI_LILLY_AND_COMPANY-GB201109001956

PATIENT
  Age: 71 Year
  Sex: Male
  Weight: 90 kg

DRUGS (9)
  1. ACETAMINOPHEN AND CODEINE PHOSPHATE [Concomitant]
     Indication: PAIN
  2. EXENATIDE [Suspect]
     Indication: DIABETES MELLITUS
     Dosage: 10 UG, BID
     Route: 058
     Dates: start: 20101102, end: 20110720
  3. SIMVASTATIN [Concomitant]
     Indication: HYPERTENSION
     Dosage: 20 MG, QD
  4. LORAZEPAM [Concomitant]
     Indication: ANXIETY
     Dosage: 1 MG, PRN
     Route: 048
  5. ASPIRIN [Concomitant]
     Indication: DIABETES MELLITUS
     Dosage: 75 MG, QD
     Route: 048
  6. PROPRANOLOL [Concomitant]
     Indication: ANXIETY
     Dosage: 160 MG, QD
     Route: 048
  7. OMEPRAZOLE [Concomitant]
     Dosage: 20 MG, QD
  8. RAMIPRIL [Concomitant]
     Dosage: 5 MG, QD
  9. METFORMIN HCL [Concomitant]
     Indication: DIABETES MELLITUS
     Dosage: 850 MG, UNK

REACTIONS (1)
  - PANCREATITIS ACUTE [None]
